FAERS Safety Report 18162636 (Version 1)
Quarter: 2020Q3

REPORT INFORMATION
  Report Type: Spontaneous
  Country: US (occurrence: US)
  Receive Date: 20200818
  Receipt Date: 20200818
  Transmission Date: 20201103
  Serious: Yes (Life-Threatening, Other)
  Sender: FDA-Public Use
  Company Number: None

PATIENT
  Age: 56 Year
  Sex: Male
  Weight: 120.15 kg

DRUGS (5)
  1. FOSENIPRIL [Concomitant]
  2. NP THYROID [Suspect]
     Active Substance: LEVOTHYROXINE\LIOTHYRONINE
     Indication: HYPOTHYROIDISM
     Dosage: ?          QUANTITY:1 TABLET(S);?
     Route: 048
     Dates: start: 20180607, end: 20200818
  3. FENTANYL 25MCG PATCH [Concomitant]
  4. NORCO [Concomitant]
     Active Substance: ACETAMINOPHEN\HYDROCODONE BITARTRATE
  5. PROZAC [Concomitant]
     Active Substance: FLUOXETINE HYDROCHLORIDE

REACTIONS (9)
  - Hyperhidrosis [None]
  - Myalgia [None]
  - Product lot number issue [None]
  - Appetite disorder [None]
  - Loss of consciousness [None]
  - Recalled product administered [None]
  - Product measured potency issue [None]
  - Heart rate irregular [None]
  - Fatigue [None]

NARRATIVE: CASE EVENT DATE: 20200709
